FAERS Safety Report 4789674-3 (Version None)
Quarter: 2005Q4

REPORT INFORMATION
  Report Type: 
  Country: None (occurrence: None)
  Receive Date: 20051006
  Receipt Date: 20050906
  Transmission Date: 20060501
  Serious: Yes (Other)
  Sender: FDA-Public Use
  Company Number: 2005AP04802

PATIENT
  Age: 22078 Day
  Sex: Female
  Weight: 38.6 kg

DRUGS (15)
  1. IRESSA [Suspect]
     Indication: LUNG ADENOCARCINOMA
     Route: 048
     Dates: start: 20050901, end: 20050905
  2. RINGEREAZE [Concomitant]
     Indication: PAIN
     Route: 048
     Dates: start: 20050201, end: 20050906
  3. MUCOSTA [Concomitant]
     Indication: GASTRITIS
     Route: 048
     Dates: start: 20050201, end: 20050906
  4. CYANOCOBALAMIN [Concomitant]
     Indication: NEURALGIA
     Route: 048
     Dates: start: 20050201
  5. KAMAG G [Concomitant]
     Indication: CONSTIPATION
     Route: 048
     Dates: start: 20050201
  6. PROTECADIN [Concomitant]
     Indication: GASTRITIS
     Route: 048
     Dates: start: 20050201
  7. NOLEPTAN [Concomitant]
     Indication: COUGH
     Route: 048
     Dates: start: 20050201
  8. TINELAC [Concomitant]
     Indication: CONSTIPATION
     Route: 048
     Dates: start: 20050201
  9. BROTIZOLAM [Concomitant]
     Indication: INSOMNIA
     Route: 048
     Dates: start: 20050201
  10. EXCEMIDE [Concomitant]
     Indication: CONVULSION
     Route: 048
     Dates: start: 20050501
  11. BETAMETHASONE SODIUM PHOSPHATE [Concomitant]
     Indication: BRAIN OEDEMA
     Route: 048
     Dates: start: 20050528
  12. AMITRIPTYLINE HCL [Concomitant]
     Indication: ANXIETY DISORDER
     Route: 048
     Dates: start: 20050825
  13. DUROTEP [Concomitant]
     Dates: start: 20050829
  14. KALIMATE [Concomitant]
     Indication: HYPERKALAEMIA
     Route: 048
     Dates: start: 20050830
  15. SYLAZEPAM [Concomitant]
     Dates: start: 20050825

REACTIONS (4)
  - BLOOD CREATINE PHOSPHOKINASE INCREASED [None]
  - DIARRHOEA [None]
  - LIVER DISORDER [None]
  - STOMATITIS [None]
